FAERS Safety Report 5569575-3 (Version None)
Quarter: 2007Q4

REPORT INFORMATION
  Report Type: 
  Country: None (occurrence: None)
  Receive Date: 20071220
  Receipt Date: 20071213
  Transmission Date: 20080405
  Serious: Yes (Life-Threatening, Other)
  Sender: FDA-Public Use
  Company Number: GR-ELI_LILLY_AND_COMPANY-GR200712002712

PATIENT
  Age: 78 Year
  Sex: Male
  Weight: 87 kg

DRUGS (4)
  1. DULOXETINE HYDROCHLORIDE [Suspect]
     Indication: NEURALGIA
     Dosage: 60 MG, DAILY (1/D)
     Route: 048
     Dates: start: 20071127, end: 20071128
  2. SOLOSA [Concomitant]
     Indication: DIABETES MELLITUS
     Dosage: 1.5 TABLETS, UNK
     Route: 048
     Dates: start: 20030101
  3. LANTUS [Concomitant]
     Indication: DIABETES MELLITUS
     Dosage: 20 U, DAILY (1/D)
     Route: 058
     Dates: start: 20050101
  4. HYTRIN [Interacting]
     Dosage: UNK UNK, DAILY (1/D)
     Route: 048

REACTIONS (7)
  - CHEST PAIN [None]
  - DIZZINESS [None]
  - DRUG INTERACTION [None]
  - DYSPHORIA [None]
  - HEADACHE [None]
  - HOT FLUSH [None]
  - HYPERTENSION [None]
